FAERS Safety Report 25958842 (Version 2)
Quarter: 2025Q4

REPORT INFORMATION
  Report Type: Report from Study
  Country: EG (occurrence: EG)
  Receive Date: 20251025
  Receipt Date: 20251027
  Transmission Date: 20260117
  Serious: No
  Sender: SANDOZ
  Company Number: EG-SANDOZ-SDZ2025EG044221

PATIENT
  Sex: Female

DRUGS (2)
  1. OMNITROPE [Suspect]
     Active Substance: SOMATROPIN
     Indication: Growth hormone deficiency
     Dosage: UNK, (STRENGTH 10 MG)
     Route: 058
  2. OMNITROPE [Suspect]
     Active Substance: SOMATROPIN
     Dosage: UNK, (STRENGTH 15 MG)
     Route: 058

REACTIONS (10)
  - Calcium deficiency [Unknown]
  - Fatigue [Not Recovered/Not Resolved]
  - Decreased appetite [Unknown]
  - Abdominal pain [Unknown]
  - Asthenia [Not Recovered/Not Resolved]
  - Anaemia [Unknown]
  - Therapy change [Unknown]
  - Wrong device used [Unknown]
  - Product availability issue [Unknown]
  - Product substitution issue [Unknown]
